FAERS Safety Report 23157825 (Version 1)
Quarter: 2023Q4

REPORT INFORMATION
  Report Type: Spontaneous
  Country: PL (occurrence: PL)
  Receive Date: 20231108
  Receipt Date: 20231108
  Transmission Date: 20240110
  Serious: Yes (Death, Hospitalization)
  Sender: FDA-Public Use
  Company Number: PL-MEDICOFARM-L_2023.06.12_PARA_1

PATIENT
  Age: 64 Year
  Sex: Female

DRUGS (6)
  1. ACETAMINOPHEN\DIPHENHYDRAMINE HYDROCHLORIDE [Suspect]
     Active Substance: ACETAMINOPHEN\DIPHENHYDRAMINE HYDROCHLORIDE
     Indication: Arthralgia
     Dosage: N/A (NIGHT)
     Route: 065
  2. OMEPRAZOLE [Suspect]
     Active Substance: OMEPRAZOLE
     Indication: Abdominal pain lower
     Dosage: 40 MG/24 H
     Route: 065
  3. ACETAMINOPHEN [Suspect]
     Active Substance: ACETAMINOPHEN
     Indication: Arthralgia
     Dosage: 1000 MG 2 ?/24 H  (DAY)
     Route: 065
  4. WARFARIN [Suspect]
     Active Substance: WARFARIN
     Indication: Coagulopathy
     Dosage: VARIABLE DOSES, ADJUSTED TO INR VALUES
     Route: 065
  5. METOPROLOL [Concomitant]
     Active Substance: METOPROLOL
     Indication: Product used for unknown indication
     Dosage: 50.000MG
     Route: 065
  6. PROPAFENONE [Concomitant]
     Active Substance: PROPAFENONE
     Indication: Product used for unknown indication
     Dosage: 150.000MG QOD
     Route: 065

REACTIONS (4)
  - Subarachnoid haemorrhage [Fatal]
  - Drug interaction [Unknown]
  - Abdominal pain lower [Unknown]
  - Medication error [Unknown]
